FAERS Safety Report 11934274 (Version 1)
Quarter: 2016Q1

REPORT INFORMATION
  Report Type: Spontaneous
  Country: US (occurrence: US)
  Receive Date: 20160121
  Receipt Date: 20160121
  Transmission Date: 20160526
  Serious: No
  Sender: FDA-Public Use
  Company Number: US-PERRIGO-15US004569

PATIENT
  Age: 52 Year
  Sex: Male

DRUGS (1)
  1. ACETAMINOPHEN-ASPIRIN-CAFFEINE 1T1 [Suspect]
     Active Substance: ACETAMINOPHEN\ASPIRIN\CAFFEINE
     Indication: HEADACHE
     Dosage: 1 TABLET, SINGLE
     Route: 048
     Dates: start: 20150422, end: 20150422

REACTIONS (5)
  - Anxiety [Recovered/Resolved]
  - Vomiting [Recovered/Resolved]
  - Nausea [Recovered/Resolved]
  - Off label use [Recovered/Resolved]
  - Dizziness [Recovered/Resolved]

NARRATIVE: CASE EVENT DATE: 20150422
